FAERS Safety Report 10128321 (Version 2)
Quarter: 2014Q2

REPORT INFORMATION
  Report Type: Spontaneous
  Country: US (occurrence: US)
  Receive Date: 20140428
  Receipt Date: 20140508
  Transmission Date: 20141212
  Serious: No
  Sender: FDA-Public Use
  Company Number: US-BIOGENIDEC-2014BI036407

PATIENT
  Age: 37 Year
  Sex: Female
  Weight: 83 kg

DRUGS (8)
  1. TECFIDERA [Suspect]
     Indication: PRODUCT USED FOR UNKNOWN INDICATION
     Route: 048
  2. ESCITALOPRAM [Concomitant]
  3. TYLENOL [Concomitant]
  4. IBUPROFEN [Concomitant]
  5. XANAX [Concomitant]
  6. ASA [Concomitant]
  7. ONDANSETRON [Concomitant]
  8. BACLOFEN [Concomitant]

REACTIONS (6)
  - Dysphagia [Unknown]
  - Wrong technique in drug usage process [Unknown]
  - Pain in extremity [Not Recovered/Not Resolved]
  - Muscle spasms [Not Recovered/Not Resolved]
  - Fall [Recovered/Resolved]
  - Gait disturbance [Not Recovered/Not Resolved]
